FAERS Safety Report 8611745-1 (Version None)
Quarter: 2012Q3

REPORT INFORMATION
  Report Type: 
  Country: None (occurrence: None)
  Receive Date: 20120822
  Receipt Date: 20120816
  Transmission Date: 20120928
  Serious: Yes (Other)
  Sender: FDA-Public Use
  Company Number: US-CELGENEUS-163-21880-12082069

PATIENT
  Sex: Female

DRUGS (4)
  1. REVLIMID [Suspect]
     Dosage: 5 MILLIGRAM
     Route: 048
     Dates: start: 20061001, end: 20111006
  2. TRAMADOL HCL [Concomitant]
     Indication: BACK PAIN
     Dosage: 100 MILLIGRAM
     Route: 065
  3. AMBIEN [Concomitant]
     Dosage: 5 MILLIGRAM
     Route: 065
  4. SYNTHROID [Concomitant]
     Indication: HYPOTHYROIDISM
     Dosage: 50 MICROGRAM
     Route: 048

REACTIONS (1)
  - BREAST CANCER [None]
